FAERS Safety Report 5340393-4 (Version None)
Quarter: 2007Q2

REPORT INFORMATION
  Report Type: 
  Country: None (occurrence: None)
  Receive Date: 20070531
  Receipt Date: 20070524
  Transmission Date: 20071010
  Serious: Yes (Other)
  Sender: FDA-Public Use
  Company Number: GB-SANOFI-SYNTHELABO-A01200705584

PATIENT

DRUGS (1)
  1. ELOXATIN [Suspect]
     Dosage: UNK

REACTIONS (1)
  - LARYNGOSPASM [None]
